FAERS Safety Report 6137142-9 (Version None)
Quarter: 2009Q1

REPORT INFORMATION
  Report Type: 
  Country: None (occurrence: None)
  Receive Date: 20090326
  Receipt Date: 20090326
  Transmission Date: 20090719
  Serious: Yes (Hospitalization, Other)
  Sender: FDA-Public Use
  Company Number: None

PATIENT
  Age: 79 Year
  Sex: Male
  Weight: 77.1115 kg

DRUGS (2)
  1. SOTALOL HYDROCHLORIDE [Suspect]
     Indication: ATRIAL FIBRILLATION
     Dosage: 80 MG BID PO
     Route: 048
     Dates: start: 20020110, end: 20081230
  2. FLECAINIDE ACETATE [Suspect]
     Indication: ATRIAL FIBRILLATION
     Dosage: 100 MG BID PO
     Route: 048
     Dates: start: 20081230, end: 20090324

REACTIONS (2)
  - NEUROLOGICAL SYMPTOM [None]
  - NO THERAPEUTIC RESPONSE [None]
